FAERS Safety Report 11726867 (Version 1)
Quarter: 2015Q4

REPORT INFORMATION
  Report Type: Spontaneous
  Country: US (occurrence: US)
  Receive Date: 20151112
  Receipt Date: 20151112
  Transmission Date: 20160304
  Serious: Yes (Death, Hospitalization, Other)
  Sender: FDA-Public Use
  Company Number: US-RAPTOR-RAP-001075-2015

PATIENT
  Age: 44 Year
  Sex: Female
  Weight: 35.83 kg

DRUGS (10)
  1. PROCYSBI DELAYED-RELEASE [Suspect]
     Active Substance: CYSTEAMINE BITARTRATE
     Indication: CYSTINOSIS
     Dosage: 825 MG, BID
     Route: 048
     Dates: start: 20150129, end: 20150627
  2. GENGRAF [Concomitant]
     Active Substance: CYCLOSPORINE
     Indication: RENAL TRANSPLANT
     Dosage: 100 MG, QD
     Route: 065
     Dates: start: 1986
  3. LEVOTHYROXINE. [Concomitant]
     Active Substance: LEVOTHYROXINE
     Indication: SUPPLEMENTATION THERAPY
     Dosage: 125 MCG, 5 DAYS A WEEK
     Route: 065
  4. PROCYSBI DELAYED-RELEASE [Suspect]
     Active Substance: CYSTEAMINE BITARTRATE
     Dosage: 1650 MG, QD
     Route: 065
  5. LEVETIRACETAM. [Concomitant]
     Active Substance: LEVETIRACETAM
     Indication: PRODUCT USED FOR UNKNOWN INDICATION
     Dosage: 1.25 ML IN AM AND 2.5ML IN PM
     Route: 065
     Dates: start: 2011
  6. PROCYSBI DELAYED-RELEASE [Suspect]
     Active Substance: CYSTEAMINE BITARTRATE
     Dosage: 1200 MG, BID
     Route: 048
  7. INSULIN N AND R [Concomitant]
     Indication: PRODUCT USED FOR UNKNOWN INDICATION
     Dosage: UNK
     Route: 065
     Dates: start: 2008
  8. PREDNISONE. [Concomitant]
     Active Substance: PREDNISONE
     Indication: PRODUCT USED FOR UNKNOWN INDICATION
     Dosage: 5 MG, DAILY
     Route: 065
     Dates: start: 1986
  9. CYSTARAN [Concomitant]
     Active Substance: CYSTEAMINE HYDROCHLORIDE
     Indication: PRODUCT USED FOR UNKNOWN INDICATION
     Dosage: UNK
     Route: 065
  10. VIMPAT [Concomitant]
     Active Substance: LACOSAMIDE
     Indication: PRODUCT USED FOR UNKNOWN INDICATION
     Dosage: 75 MG, IN THE AM AND AT BEDTIME
     Dates: start: 2011

REACTIONS (17)
  - Cystinosis [None]
  - Pneumonia aspiration [Recovering/Resolving]
  - Urinary tract infection [Recovering/Resolving]
  - Saliva altered [Unknown]
  - Dehydration [Recovering/Resolving]
  - Gastrointestinal tube insertion [Unknown]
  - Dysphagia [Not Recovered/Not Resolved]
  - Disease complication [None]
  - Pneumonia [Fatal]
  - Seizure [Unknown]
  - Sepsis [Recovering/Resolving]
  - Feeding disorder [Recovering/Resolving]
  - Feeding tube complication [None]
  - Cerebral haemorrhage [Unknown]
  - Salivary hypersecretion [Unknown]
  - General physical health deterioration [None]
  - Concomitant disease progression [None]

NARRATIVE: CASE EVENT DATE: 2015
